FAERS Safety Report 6502373-2 (Version None)
Quarter: 2009Q4

REPORT INFORMATION
  Report Type: 
  Country: None (occurrence: None)
  Receive Date: 20091216
  Receipt Date: 20091208
  Transmission Date: 20100525
  Serious: No
  Sender: FDA-Public Use
  Company Number: US-ABBOTT-09P-163-0613930-00

PATIENT
  Sex: Male
  Weight: 72.186 kg

DRUGS (4)
  1. TRILIPIX [Suspect]
     Indication: DRUG USE FOR UNKNOWN INDICATION
     Dates: start: 20091001, end: 20091101
  2. TRILIPIX [Suspect]
     Dates: start: 20091201
  3. CARVIDOLOL [Concomitant]
     Indication: DRUG USE FOR UNKNOWN INDICATION
  4. VYTORIN [Concomitant]
     Indication: DRUG USE FOR UNKNOWN INDICATION
     Dosage: 5/10MG TAKES 1/2 A PILL

REACTIONS (3)
  - CONSTIPATION [None]
  - EYE PRURITUS [None]
  - HORDEOLUM [None]
